FAERS Safety Report 13810907 (Version 1)
Quarter: 2017Q3

REPORT INFORMATION
  Report Type: Spontaneous
  Country: US (occurrence: US)
  Receive Date: 20170728
  Receipt Date: 20170728
  Transmission Date: 20171127
  Serious: No
  Sender: FDA-Public Use
  Company Number: US-ROCHE-1370023

PATIENT
  Sex: Female

DRUGS (1)
  1. BONIVA [Suspect]
     Active Substance: IBANDRONATE SODIUM
     Indication: OSTEOPOROSIS POSTMENOPAUSAL
     Route: 065

REACTIONS (5)
  - Oedema [Not Recovered/Not Resolved]
  - Swelling [Recovering/Resolving]
  - Injection site extravasation [Unknown]
  - Radial nerve compression [Not Recovered/Not Resolved]
  - Soft tissue disorder [Not Recovered/Not Resolved]

NARRATIVE: CASE EVENT DATE: 2014
